FAERS Safety Report 4280119-9 (Version None)
Quarter: 2004Q1

REPORT INFORMATION
  Report Type: 
  Country: None (occurrence: None)
  Receive Date: 20040126
  Receipt Date: 20040114
  Transmission Date: 20041129
  Serious: Yes (Hospitalization)
  Sender: FDA-Public Use
  Company Number: 234791

PATIENT
  Age: 57 Year
  Sex: Male

DRUGS (1)
  1. NOVOMIX 30 FLEX PEN (INSULIN ASPART) SUSPENSION FOR INJECTION, 100U/ML [Suspect]
     Indication: ILL-DEFINED DISORDER

REACTIONS (2)
  - DEVICE FAILURE [None]
  - DIZZINESS [None]
